FAERS Safety Report 9578078 (Version 1)
Quarter: 2013Q4

REPORT INFORMATION
  Report Type: Spontaneous
  Country: US (occurrence: US)
  Receive Date: 20131001
  Receipt Date: 20131001
  Transmission Date: 20140711
  Serious: No
  Sender: FDA-Public Use
  Company Number: US-AMGEN-USASP2013011397

PATIENT
  Age: 33 Year
  Sex: Female

DRUGS (11)
  1. ENBREL [Suspect]
     Indication: PRODUCT USED FOR UNKNOWN INDICATION
     Dosage: 25 MG, 2 TIMES/WK
     Route: 058
  2. METHOTREXATE [Concomitant]
     Dosage: 2.5 MG, UNK
  3. DEPO-PROVERA [Concomitant]
     Dosage: 400/ML
  4. FOLIC ACID [Concomitant]
     Dosage: UNK
  5. PREVACID [Concomitant]
     Dosage: 15 MG, UNK
  6. VITAMIN D                          /00107901/ [Concomitant]
     Dosage: 1000 UNIT, UNK
  7. NIACIN [Concomitant]
     Dosage: 500 MG, UNK
  8. MULTIVITAMINS, PLAIN [Concomitant]
     Dosage: UNK
  9. FISH OIL [Concomitant]
     Dosage: UNK
  10. CALCIUM + VITAMIN D                /01483701/ [Concomitant]
     Dosage: UNK
  11. IRON [Concomitant]
     Dosage: 50 MG, UNK

REACTIONS (2)
  - Upper respiratory tract infection [Unknown]
  - Influenza [Unknown]
